FAERS Safety Report 15928705 (Version 1)
Quarter: 2019Q1

REPORT INFORMATION
  Report Type: Report from Study
  Country: DE (occurrence: DE)
  Receive Date: 20190206
  Receipt Date: 20190206
  Transmission Date: 20190417
  Serious: Yes (Hospitalization)
  Sender: FDA-Public Use
  Company Number: DE-TEVA-2019-DE-1006351

PATIENT
  Age: 71 Year
  Sex: Female
  Weight: 60 kg

DRUGS (10)
  1. ASPIRIN. [Suspect]
     Active Substance: ASPIRIN
     Dosage: 100 MILLIGRAM DAILY; , ORAL
     Route: 048
  2. ALLOPURINOL. [Suspect]
     Active Substance: ALLOPURINOL
     Route: 048
     Dates: start: 20020318, end: 20020415
  3. AESCULUS HIPPOCASTANUM EXTRACT/THIAMINE HYDROCHLORIDE [Concomitant]
     Route: 048
  4. FUROSEMID [Suspect]
     Active Substance: FUROSEMIDE
     Route: 048
  5. INSULIN ACTRAPHANE [Concomitant]
     Route: 058
  6. PANTOZOL [Concomitant]
     Active Substance: PANTOPRAZOLE SODIUM
     Route: 048
  7. SOTALEX [Concomitant]
     Active Substance: SOTALOL
     Route: 048
  8. ESTROGEN NOS [Concomitant]
     Active Substance: ESTROGENS
     Route: 048
  9. ENAHEXAL [ENALAPRIL MALEATE] [Concomitant]
     Route: 048
  10. BROMAZANIL [Suspect]
     Active Substance: BROMAZEPAM
     Dosage: 1.5 MILLIGRAM DAILY;
     Route: 048

REACTIONS (14)
  - Mucosal erosion [Recovered/Resolved]
  - Pruritus [Recovered/Resolved]
  - Eye irritation [Recovered/Resolved]
  - Rash macular [Recovered/Resolved]
  - Pyrexia [Recovered/Resolved]
  - Lip erosion [Recovered/Resolved]
  - Stomatitis [Recovered/Resolved]
  - Mucosal discolouration [Recovered/Resolved]
  - Generalised erythema [Recovered/Resolved]
  - Oral mucosal erythema [Recovered/Resolved]
  - Stevens-Johnson syndrome [Recovered/Resolved]
  - Skin fissures [Recovered/Resolved]
  - Chills [Recovered/Resolved]
  - Blister [Recovered/Resolved]

NARRATIVE: CASE EVENT DATE: 20020415
